FAERS Safety Report 10993424 (Version 1)
Quarter: 2015Q2

REPORT INFORMATION
  Report Type: Spontaneous
  Country: US (occurrence: None)
  Receive Date: 20150406
  Receipt Date: 20150406
  Transmission Date: 20150821
  Serious: No
  Sender: FDA-Public Use
  Company Number: None

PATIENT
  Sex: Female
  Weight: 67.59 kg

DRUGS (1)
  1. BUPROPRION SR [Suspect]
     Active Substance: BUPROPION
     Indication: BIPOLAR DISORDER
     Dosage: APPROXIMATELY 2012
     Route: 048
     Dates: start: 2012

REACTIONS (1)
  - Rash generalised [None]
